FAERS Safety Report 9620870 (Version 1)
Quarter: 2013Q4

REPORT INFORMATION
  Report Type: Spontaneous
  Country: DE (occurrence: DE)
  Receive Date: 20131015
  Receipt Date: 20131015
  Transmission Date: 20140711
  Serious: Yes (Congenital Anomaly)
  Sender: FDA-Public Use
  Company Number: PHHY2013DE113543

PATIENT
  Age: 1 Day
  Sex: Female

DRUGS (7)
  1. METOPROLOL [Suspect]
     Route: 064
  2. SEROQUEL [Suspect]
     Dosage: MATERNAL DOSE: AT 400 MG DAILY
     Route: 064
  3. SEROQUEL [Suspect]
     Dosage: MATERNAL DOSE AT 800 MG DAILY
     Route: 064
  4. VALPROINSAEURE [Concomitant]
     Dosage: GESTATIONAL WEEK 0 TO 6, DOSE 100 MG DAILY
     Route: 064
  5. VALPROINSAEURE [Concomitant]
     Dosage: GESTATIONAL WEEK 0 TO 6, DOSE 500 MG DAILY
     Dates: start: 20080623
  6. FOLSAEURE [Concomitant]
     Indication: PROPHYLAXIS OF NEURAL TUBE DEFECT
     Dosage: GESTATIONAL WEEK 5.4 TO 23.1 AT A DOSE OF 5 MG DAILY,
     Route: 064
     Dates: start: 20080726, end: 20081126
  7. INSULIN [Concomitant]
     Dosage: GESTATIONAL WEEK 35
     Route: 064

REACTIONS (1)
  - Genital labial adhesions [Unknown]
